FAERS Safety Report 5501906-2 (Version None)
Quarter: 2007Q4

REPORT INFORMATION
  Report Type: 
  Country: None (occurrence: None)
  Receive Date: 20071030
  Receipt Date: 20071018
  Transmission Date: 20080405
  Serious: Yes (Other)
  Sender: FDA-Public Use
  Company Number: GB-ROCHE-510842

PATIENT
  Age: 33 Year
  Sex: Female
  Weight: 114 kg

DRUGS (2)
  1. XENICAL [Suspect]
     Indication: OBESITY
     Route: 048
     Dates: start: 20070430, end: 20070828
  2. UNSPECIFIED DRUG [Concomitant]
     Route: 048
     Dates: start: 20070201, end: 20070701

REACTIONS (3)
  - CONVULSION [None]
  - DIZZINESS [None]
  - PARAESTHESIA [None]
